FAERS Safety Report 15618656 (Version 1)
Quarter: 2018Q4

REPORT INFORMATION
  Report Type: Spontaneous
  Country: US (occurrence: US)
  Receive Date: 20181114
  Receipt Date: 20181114
  Transmission Date: 20190205
  Serious: No
  Sender: FDA-Public Use
  Company Number: US-PFIZER INC-2018453986

PATIENT
  Age: 66 Year
  Sex: Female

DRUGS (2)
  1. LYRICA [Suspect]
     Active Substance: PREGABALIN
     Indication: NEURALGIA
     Dosage: 100 MG, 2X/DAY
     Route: 048
     Dates: end: 2015
  2. LYRICA [Suspect]
     Active Substance: PREGABALIN
     Dosage: UNK, 1X/DAY
     Dates: start: 2015

REACTIONS (4)
  - Intentional product use issue [Unknown]
  - Joint swelling [Recovered/Resolved]
  - Insomnia [Unknown]
  - Drug ineffective [Recovering/Resolving]

NARRATIVE: CASE EVENT DATE: 201503
